FAERS Safety Report 16578881 (Version 1)
Quarter: 2019Q3

REPORT INFORMATION
  Report Type: Spontaneous
  Country: GB (occurrence: GB)
  Receive Date: 20190716
  Receipt Date: 20190716
  Transmission Date: 20191004
  Serious: Yes (Death, Life-Threatening, Hospitalization, Other)
  Sender: FDA-Public Use
  Company Number: GB-MYLANLABS-2019M1066395

PATIENT
  Age: 76 Year
  Sex: Female

DRUGS (3)
  1. CLINDAMYCIN. [Suspect]
     Active Substance: CLINDAMYCIN
     Indication: CLOSTRIDIAL INFECTION
     Dosage: 600 MILLIGRAM, Q8H (600 MG,TID)
     Route: 042
     Dates: start: 20150417
  2. AMOXICILLIN/CLAVULANIC ACID [Suspect]
     Active Substance: AMOXICILLIN\CLAVULANIC ACID
     Indication: CLOSTRIDIAL INFECTION
     Dosage: 1.2 GRAM, Q8H (1.2 G,TID)
     Route: 042
     Dates: start: 20150417
  3. HYDROGEN PEROXIDE. [Concomitant]
     Active Substance: HYDROGEN PEROXIDE
     Dosage: UNK (RINSE)
     Dates: start: 201504, end: 201504

REACTIONS (3)
  - Clostridial infection [Fatal]
  - Drug ineffective [Fatal]
  - Drug resistance [Unknown]

NARRATIVE: CASE EVENT DATE: 20150417
